FAERS Safety Report 7233267-5 (Version None)
Quarter: 2011Q1

REPORT INFORMATION
  Report Type: 
  Country: None (occurrence: None)
  Receive Date: 20110106
  Receipt Date: 20101228
  Transmission Date: 20110831
  Serious: No
  Sender: FDA-Public Use
  Company Number: 2010-01066

PATIENT
  Age: 61 Year
  Sex: Female
  Weight: 64.4108 kg

DRUGS (2)
  1. CRESTOR [Concomitant]
  2. ZICAM COLD REMEDY NASAL GEL [Suspect]
     Dosage: 1 DOSE
     Dates: start: 20101223, end: 20101223

REACTIONS (3)
  - ANOSMIA [None]
  - APPLICATION SITE PAIN [None]
  - AGEUSIA [None]
